FAERS Safety Report 16100993 (Version 1)
Quarter: 2019Q1

REPORT INFORMATION
  Report Type: Spontaneous
  Country: RU (occurrence: RU)
  Receive Date: 20190321
  Receipt Date: 20190321
  Transmission Date: 20190418
  Serious: Yes (Other)
  Sender: FDA-Public Use
  Company Number: RU-B. BRAUN MEDICAL INC.-2064370

PATIENT
  Age: 78 Year
  Sex: Female
  Weight: 65 kg

DRUGS (16)
  1. SODIUM THIOSULFATE [Concomitant]
     Active Substance: SODIUM THIOSULFATE
  2. ACETYLSALICYLIC ACID + MAGNESIUM HYDROXIDE [Concomitant]
     Active Substance: ASPIRIN\MAGNESIUM HYDROXIDE
  3. ISOPHANE INSULIN [Concomitant]
     Active Substance: INSULIN NOS
  4. HLOROPIRAMIN [Concomitant]
  5. SODIUM CHLORIDE INJECTIONS USP 0264-7800-00 0264-7800-10 [Suspect]
     Active Substance: SODIUM CHLORIDE
  6. GLIMEPIRIDE. [Concomitant]
     Active Substance: GLIMEPIRIDE
  7. BISOPROLOL [Concomitant]
     Active Substance: BISOPROLOL
  8. DETRALEX [Concomitant]
     Active Substance: DIOSMIN\HESPERIDIN
  9. METFORMIN [Concomitant]
     Active Substance: METFORMIN HYDROCHLORIDE
  10. AMLODLPINE [Concomitant]
  11. PENTOXIFYLLINE. [Concomitant]
     Active Substance: PENTOXIFYLLINE
  12. PROTAFAN HM [Concomitant]
  13. DEXAMETHASONE. [Concomitant]
     Active Substance: DEXAMETHASONE
  14. AMLODIPINE + LOSARTAN [Concomitant]
  15. SUPRASTIN [Concomitant]
     Active Substance: CHLOROPYRAMINE HYDROCHLORIDE
  16. BISOPROLOL [Concomitant]
     Active Substance: BISOPROLOL

REACTIONS (2)
  - Urticaria [None]
  - Skin exfoliation [None]
